FAERS Safety Report 18679535 (Version 1)
Quarter: 2020Q4

REPORT INFORMATION
  Report Type: Spontaneous
  Country: US (occurrence: US)
  Receive Date: 20201229
  Receipt Date: 20201229
  Transmission Date: 20210114
  Serious: No
  Sender: FDA-Public Use
  Company Number: US-CLOVIS ONCOLOGY-CLO-2020-000784

PATIENT
  Sex: Male

DRUGS (2)
  1. RUBRACA [Suspect]
     Active Substance: RUCAPARIB CAMSYLATE
     Indication: TRANSITIONAL CELL CANCER OF RENAL PELVIS AND URETER METASTATIC
  2. RUBRACA [Suspect]
     Active Substance: RUCAPARIB CAMSYLATE
     Indication: TRANSITIONAL CELL CARCINOMA
     Dosage: UNK
     Route: 048
     Dates: start: 202003

REACTIONS (3)
  - Product use in unapproved indication [Unknown]
  - Constipation [Recovering/Resolving]
  - Anaemia [Unknown]

NARRATIVE: CASE EVENT DATE: 2020
